FAERS Safety Report 17685130 (Version 1)
Quarter: 2020Q2

REPORT INFORMATION
  Report Type: Spontaneous
  Country: US (occurrence: US)
  Receive Date: 20200420
  Receipt Date: 20200420
  Transmission Date: 20200714
  Serious: No
  Sender: FDA-Public Use
  Company Number: None

PATIENT
  Age: 55 Year
  Sex: Male

DRUGS (10)
  1. AZITHROMYCIN 500MG [Concomitant]
     Active Substance: AZITHROMYCIN
  2. METHYLPHENIDATE 20MG [Concomitant]
     Active Substance: METHYLPHENIDATE
  3. OMEPRAZOLE 40MG [Concomitant]
     Active Substance: OMEPRAZOLE
  4. BUPROPION XL 150MG [Concomitant]
     Active Substance: BUPROPION
  5. ALBUTEROL MDI [Concomitant]
     Active Substance: ALBUTEROL
  6. BETHKIS [Suspect]
     Active Substance: TOBRAMYCIN
     Route: 055
  7. SYMBICORT [Concomitant]
     Active Substance: BUDESONIDE\FORMOTEROL FUMARATE DIHYDRATE
  8. JARDIANCE [Concomitant]
     Active Substance: EMPAGLIFLOZIN
  9. GABAPENTIN 400MG [Concomitant]
     Active Substance: GABAPENTIN
  10. MONTELUKAST [Concomitant]
     Active Substance: MONTELUKAST SODIUM

REACTIONS (3)
  - Oropharyngeal pain [None]
  - Dyspnoea [None]
  - Cough [None]

NARRATIVE: CASE EVENT DATE: 20200420
